FAERS Safety Report 4666023-2 (Version None)
Quarter: 2005Q2

REPORT INFORMATION
  Report Type: 
  Country: None (occurrence: None)
  Receive Date: 20050519
  Receipt Date: 20040720
  Transmission Date: 20051028
  Serious: Yes (Death, Hospitalization, Disabling)
  Sender: FDA-Public Use
  Company Number: DE-AMGEN-UK084109

PATIENT
  Sex: Female

DRUGS (4)
  1. ARANESP [Suspect]
     Indication: ANAEMIA OF MALIGNANT DISEASE
     Route: 065
     Dates: start: 20040513, end: 20040701
  2. RED BLOOD CELLS [Concomitant]
  3. DIPIDOLOR [Concomitant]
     Route: 065
  4. TREOSULFAN [Concomitant]
     Route: 065
     Dates: start: 20030101

REACTIONS (11)
  - BALANCE DISORDER [None]
  - DEAFNESS BILATERAL [None]
  - HAEMOGLOBIN DECREASED [None]
  - MALIGNANT NEOPLASM PROGRESSION [None]
  - MIDDLE EAR EFFUSION [None]
  - NAUSEA [None]
  - OTITIS MEDIA [None]
  - PNEUMONIA [None]
  - PULMONARY EMBOLISM [None]
  - TINNITUS [None]
  - VOMITING [None]
